FAERS Safety Report 10971821 (Version 1)
Quarter: 2015Q1

REPORT INFORMATION
  Report Type: Spontaneous
  Country: US (occurrence: None)
  Receive Date: 20150330
  Receipt Date: 20150330
  Transmission Date: 20150721
  Serious: Yes (Other)
  Sender: FDA-Public Use
  Company Number: None

PATIENT
  Age: 73 Year
  Sex: Female
  Weight: 77.11 kg

DRUGS (15)
  1. LIDOCAINE PATCHES [Concomitant]
  2. CARVEDILOL. [Concomitant]
     Active Substance: CARVEDILOL
  3. BABY ASA [Concomitant]
     Active Substance: ASPIRIN
  4. PRENATAL VITS. [Concomitant]
  5. FENOFIBRIC [Concomitant]
  6. SOMA [Concomitant]
     Active Substance: CARISOPRODOL
  7. PRAVASTATIN [Concomitant]
     Active Substance: PRAVASTATIN\PRAVASTATIN SODIUM
  8. ZOLOFT [Concomitant]
     Active Substance: SERTRALINE HYDROCHLORIDE
  9. VALIUM [Concomitant]
     Active Substance: DIAZEPAM
  10. CALCIUM [Concomitant]
     Active Substance: CALCIUM
  11. FISH OIL [Concomitant]
     Active Substance: FISH OIL
  12. IRON [Concomitant]
     Active Substance: IRON
  13. NORCO [Concomitant]
     Active Substance: ACETAMINOPHEN\HYDROCODONE BITARTRATE
  14. FETZIMA [Suspect]
     Active Substance: LEVOMILNACIPRAN HYDROCHLORIDE
     Indication: DEPRESSION
     Dosage: 1 PILL
     Route: 048
     Dates: start: 20150109, end: 20150114
  15. QUINAPRIL [Concomitant]
     Active Substance: QUINAPRIL\QUINAPRIL HYDROCHLORIDE

REACTIONS (12)
  - Agitation [None]
  - Mood swings [None]
  - Anger [None]
  - Crying [None]
  - Blood pressure increased [None]
  - Homicidal ideation [None]
  - Abdominal discomfort [None]
  - Suicidal ideation [None]
  - Screaming [None]
  - Paranoia [None]
  - Hostility [None]
  - Heart rate increased [None]

NARRATIVE: CASE EVENT DATE: 20140109
